FAERS Safety Report 20264219 (Version 2)
Quarter: 2022Q1

REPORT INFORMATION
  Report Type: Report from Study
  Country: EG (occurrence: EG)
  Receive Date: 20211231
  Receipt Date: 20220112
  Transmission Date: 20220423
  Serious: Yes (Other)
  Sender: FDA-Public Use
  Company Number: EG-NOVARTISPH-NVSC2021EG295800

PATIENT
  Sex: Female

DRUGS (7)
  1. GLIVEC [Suspect]
     Active Substance: IMATINIB MESYLATE
     Indication: Chronic myeloid leukaemia
     Dosage: UNK, QD (1- 4 CAPS/DAY)
     Route: 048
     Dates: start: 201910, end: 20210915
  2. TASIGNA [Suspect]
     Active Substance: NILOTINIB
     Indication: Chronic myeloid leukaemia
     Dosage: UNK, QD (2-16 SEP 2021, 2- 4 CAPS/DAY)
     Route: 048
     Dates: start: 20210916
  3. UNSPECIFIED INGREDIENT [Concomitant]
     Active Substance: UNSPECIFIED INGREDIENT
     Indication: Analgesic therapy
     Dosage: 1- 2 MONTHS AGO
     Route: 065
  4. IRON [Concomitant]
     Active Substance: IRON
     Indication: Anaemia
     Dosage: 1 DOSAGE FORM, QD (SOLUTION, ONLY ONE TIME)
     Route: 042
     Dates: start: 202103
  5. IRON [Concomitant]
     Active Substance: IRON
     Dosage: 1 DOSAGE FORM, QD (SOLUTION, ONLY ONE TIME)
     Route: 042
     Dates: start: 202108
  6. AGGREX [Concomitant]
     Indication: Anticoagulant therapy
     Dosage: 2 DOSAGE FORM, QD
     Route: 065
  7. TENORMIN [Concomitant]
     Active Substance: ATENOLOL
     Indication: Hypertension
     Dosage: 1 DOSAGE FORM (EVERY 2 DAYS) (10-15 YEARS AGO)
     Route: 065

REACTIONS (12)
  - Oedema [Recovered/Resolved]
  - Overweight [Recovered/Resolved]
  - Alopecia [Recovered/Resolved]
  - Cytogenetic analysis abnormal [Unknown]
  - Cyanosis [Recovered/Resolved]
  - Bone pain [Recovered/Resolved]
  - Haemoglobin decreased [Recovering/Resolving]
  - Drug ineffective [Unknown]
  - Arthralgia [Not Recovered/Not Resolved]
  - Gait disturbance [Not Recovered/Not Resolved]
  - Back pain [Not Recovered/Not Resolved]
  - Product dose omission issue [Recovered/Resolved]

NARRATIVE: CASE EVENT DATE: 20210101
